FAERS Safety Report 10433420 (Version 1)
Quarter: 2014Q3

REPORT INFORMATION
  Report Type: Spontaneous
  Country: US (occurrence: US)
  Receive Date: 20140905
  Receipt Date: 20140905
  Transmission Date: 20150326
  Serious: Yes (Other)
  Sender: FDA-Public Use
  Company Number: US-BAYER-2014-132248

PATIENT
  Sex: Male

DRUGS (1)
  1. XOFIGO [Suspect]
     Active Substance: RADIUM RA-223 DICHLORIDE
     Indication: HORMONE-REFRACTORY PROSTATE CANCER
     Dosage: SIX TREATMENTS
     Dates: start: 2013, end: 2013

REACTIONS (3)
  - General physical health deterioration [None]
  - Prostate cancer [None]
  - Prostatic specific antigen increased [None]
